FAERS Safety Report 10716855 (Version 1)
Quarter: 2015Q1

REPORT INFORMATION
  Report Type: Spontaneous
  Country: US (occurrence: US)
  Receive Date: 20150116
  Receipt Date: 20150116
  Transmission Date: 20150721
  Serious: No
  Sender: FDA-Public Use
  Company Number: US-ENDO PHARMACEUTICALS INC.-HCDA20140143

PATIENT
  Sex: Male

DRUGS (6)
  1. HYDROCODONE BITARTRATE AND ACETAMINOPHEN [Suspect]
     Active Substance: ACETAMINOPHEN\HYDROCODONE BITARTRATE
     Indication: PAIN
     Dosage: UNKNOWN
     Route: 048
  2. HYDROCODONE [Concomitant]
     Active Substance: HYDROCODONE
     Indication: HAND FRACTURE
     Dosage: UNKNOWN
     Route: 048
  3. ANTACIDS [Concomitant]
     Active Substance: UNSPECIFIED INGREDIENT
     Indication: HIATUS HERNIA
     Dosage: UNKNOWN
     Route: 048
  4. UNSPECIFIED PAIN MEDICATION [Concomitant]
     Indication: PAIN
     Dosage: UNKNOWN
     Route: 060
  5. HYDROCODONE [Concomitant]
     Active Substance: HYDROCODONE
     Indication: ANKLE OPERATION
  6. PERCOCET [Concomitant]
     Active Substance: ACETAMINOPHEN\OXYCODONE HYDROCHLORIDE
     Indication: ANKLE OPERATION
     Dosage: UNKNOWN
     Route: 048
     Dates: start: 2009

REACTIONS (1)
  - Drug ineffective [Unknown]

NARRATIVE: CASE EVENT DATE: 2012
